FAERS Safety Report 19769352 (Version 1)
Quarter: 2021Q3

REPORT INFORMATION
  Report Type: Spontaneous
  Country: NL (occurrence: NL)
  Receive Date: 20210831
  Receipt Date: 20210831
  Transmission Date: 20211014
  Serious: Yes (Hospitalization)
  Sender: FDA-Public Use
  Company Number: NL-MYLANLABS-2021M1056253

PATIENT
  Age: 83 Year
  Sex: Female
  Weight: 70.7 kg

DRUGS (16)
  1. FENPROCOUMON [Concomitant]
     Active Substance: PHENPROCOUMON
     Dosage: UNK, TABLET, 3 MG (MILLIGRAM)
  2. CEFUROXIM                          /00454601/ [Concomitant]
     Active Substance: CEFUROXIME
     Dosage: UNK, POEDER INJECTIEVLOEISTOF, 750 MG (MILLIGRAM)
  3. FUROSEMIDE. [Concomitant]
     Active Substance: FUROSEMIDE
     Dosage: UNK, INJECTIEVLOEISTOF, 10 MG/ML (MILLIGRAM PER MILLILITER)
  4. METOCLOPRAMIDE. [Concomitant]
     Active Substance: METOCLOPRAMIDE
     Dosage: UNK, INJECTIEVLOEISTOF, 5 MG/ML (MILLIGRAM PER MILLILITER)
  5. RIFAMPICINE [Suspect]
     Active Substance: RIFAMPIN
     Indication: DEVICE RELATED INFECTION
     Dosage: 2 KEER PER DAG 1 STUK
     Dates: start: 20210303, end: 20210303
  6. MORFINE [Concomitant]
     Active Substance: MORPHINE
     Dosage: UNK, INFUSIEVLOEISTOF, 10 MG/ML (MILLIGRAM PER MILLILITER)
  7. AMIODARON                          /00133101/ [Concomitant]
     Active Substance: AMIODARONE
     Dosage: UNK, TABLET, 200 MG (MILLIGRAM)
  8. ATORVASTATINE                      /01326101/ [Concomitant]
     Active Substance: ATORVASTATIN
     Dosage: UNK, TABLET, 20 MG (MILLIGRAM)
  9. AMLODIPINE [Concomitant]
     Active Substance: AMLODIPINE BESYLATE
     Dosage: UNK, TABLET, 5 MG (MILLIGRAM)
  10. CIPROFLOXACIN. [Suspect]
     Active Substance: CIPROFLOXACIN
     Indication: DEVICE RELATED INFECTION
     Dosage: 500 MILLIGRAM, 2 X PER DAG 1 STUK
     Dates: start: 20210303, end: 20210309
  11. PANTOPRAZOL                        /01263201/ [Concomitant]
     Active Substance: PANTOPRAZOLE
     Dosage: UNK, MAAGSAPRESISTENTE TABLET, 40 MG (MILLIGRAM)
  12. ACETYLSALICYLZUUR [Concomitant]
     Active Substance: ASPIRIN
     Dosage: UNK, TABLET, 80 MG (MILLIGRAM)
  13. EZETIMIBA [Concomitant]
     Active Substance: EZETIMIBE
     Dosage: UNK, TABLET, 10 MG (MILLIGRAM)
  14. SEVELAMEERCARBONAAT AUROBINDO [Concomitant]
     Dosage: UNK, TABLET, 800 MG (MILLIGRAM)
  15. METOPROLOL. [Concomitant]
     Active Substance: METOPROLOL
     Dosage: UNK, TABLET MET GEREGULEERDE AFGIFTE, 50 MG (MILLIGRAM)
  16. TEMAZEPAM. [Concomitant]
     Active Substance: TEMAZEPAM
     Dosage: CAPSULE, 10 MG (MILLIGRAM)

REACTIONS (1)
  - Renal impairment [Not Recovered/Not Resolved]

NARRATIVE: CASE EVENT DATE: 20210309
